FAERS Safety Report 16507593 (Version 3)
Quarter: 2019Q4

REPORT INFORMATION
  Report Type: Report from Study
  Country: US (occurrence: US)
  Receive Date: 20190701
  Receipt Date: 20191126
  Transmission Date: 20200122
  Serious: Yes (Hospitalization)
  Sender: FDA-Public Use
  Company Number: US-ACTELION-A-US2019-187301

PATIENT
  Sex: Male
  Weight: 59.86 kg

DRUGS (4)
  1. WARFARIN [Concomitant]
     Active Substance: WARFARIN
  2. OPSUMIT [Suspect]
     Active Substance: MACITENTAN
     Indication: PULMONARY HYPERTENSION
     Dosage: 10 MG, QD
     Route: 048
  3. DILTIAZEM. [Concomitant]
     Active Substance: DILTIAZEM
  4. SILDENAFIL CITRATE. [Concomitant]
     Active Substance: SILDENAFIL CITRATE

REACTIONS (8)
  - Transfusion [Unknown]
  - Therapy non-responder [Unknown]
  - Hypotension [Unknown]
  - Intestinal obstruction [Unknown]
  - Dialysis related complication [Unknown]
  - Asthenia [Unknown]
  - Haemoglobin decreased [Unknown]
  - Haemorrhage [Unknown]
